FAERS Safety Report 6682384-7 (Version None)
Quarter: 2010Q2

REPORT INFORMATION
  Report Type: 
  Country: None (occurrence: None)
  Receive Date: 20100415
  Receipt Date: 20100407
  Transmission Date: 20101027
  Serious: Yes (Other)
  Sender: FDA-Public Use
  Company Number: US-PFIZER INC-2010044038

PATIENT
  Age: 67 Year
  Sex: Female

DRUGS (4)
  1. LIPITOR [Suspect]
  2. METFORMIN HCL [Suspect]
     Dosage: 500 MG, UNK
  3. HYZAAR [Suspect]
     Dosage: 100/25
  4. LUMIGAN [Suspect]
     Route: 047

REACTIONS (1)
  - FIBROMYALGIA [None]
